FAERS Safety Report 7036868 (Version 1)
Quarter: 2020Q3

REPORT INFORMATION
  Report Type: Report from Study
  Country: US (occurrence: US)
  Receive Date: 20090630
  Receipt Date: 20090630
  Transmission Date: 20201104
  Serious: Yes (Other)
  Sender: FDA-Public Use
  Company Number: US-ROCHE-640212

PATIENT
  Age: 32 Year
  Sex: Female
  Weight: 64 kg

DRUGS (1)
  1. IBANDRONIC ACID. [Suspect]
     Active Substance: IBANDRONIC ACID
     Dosage: TOTAL DOSE ADMINISTERED SO FAR 4750 MG, FREQUENCY: DAILY, LAST DOSE ADMINISTERED ON 10 JUN 09
     Route: 048
     Dates: start: 20090307

REACTIONS (1)
  - Hypophosphataemia [Not Recovered/Not Resolved]

NARRATIVE: CASE EVENT DATE: 20090605
